FAERS Safety Report 17331905 (Version 1)
Quarter: 2020Q1

REPORT INFORMATION
  Report Type: Spontaneous
  Country: US (occurrence: US)
  Receive Date: 20200128
  Receipt Date: 20200128
  Transmission Date: 20200409
  Serious: No
  Sender: FDA-Public Use
  Company Number: US-EPIHEALTH-2019-US-024030

PATIENT
  Age: 49 Year
  Sex: Male
  Weight: 83.92 kg

DRUGS (1)
  1. RHOFADE [Suspect]
     Active Substance: OXYMETAZOLINE HYDROCHLORIDE
     Indication: ERYTHEMA
     Dosage: APPLIED TO FACE AND NECK SOME DAYS
     Route: 061
     Dates: start: 20191126, end: 20191216

REACTIONS (3)
  - Application site erythema [Recovering/Resolving]
  - Application site rash [Recovering/Resolving]
  - Application site paraesthesia [Not Recovered/Not Resolved]

NARRATIVE: CASE EVENT DATE: 20191126
